FAERS Safety Report 12902531 (Version 1)
Quarter: 2016Q4

REPORT INFORMATION
  Report Type: Spontaneous
  Country: US (occurrence: US)
  Receive Date: 20161102
  Receipt Date: 20161102
  Transmission Date: 20170207
  Serious: Yes (Other)
  Sender: FDA-Public Use
  Company Number: US-VIIV HEALTHCARE LIMITED-US2016160893

PATIENT
  Age: 30 Year
  Sex: Male

DRUGS (1)
  1. TRIUMEQ [Suspect]
     Active Substance: ABACAVIR SULFATE\DOLUTEGRAVIR SODIUM\LAMIVUDINE
     Indication: PRODUCT USED FOR UNKNOWN INDICATION
     Dosage: 1 DF, UNK
     Dates: start: 201604, end: 201609

REACTIONS (4)
  - Hypertension [Recovering/Resolving]
  - Weight increased [Recovering/Resolving]
  - Epistaxis [Recovering/Resolving]
  - Loss of consciousness [Recovering/Resolving]
